FAERS Safety Report 9154628 (Version 1)
Quarter: 2013Q1

REPORT INFORMATION
  Report Type: Spontaneous
  Country: GB (occurrence: None)
  Receive Date: 20130207
  Receipt Date: 20130207
  Transmission Date: 20140127
  Serious: No
  Sender: FDA-Public Use
  Company Number: 2012276096

PATIENT
  Age: 33 Year
  Sex: Female

DRUGS (2)
  1. FRAGMIN (DALTEPARIN SODIUM) SOLUTION FOR INJECTION [Suspect]
     Indication: PROPHYLAXIS
     Dosage: 7500 IU 1XDAY SUB
     Route: 058
     Dates: start: 20120611, end: 20120910
  2. FOLIC ACID (FOLIC ACID) [Concomitant]

REACTIONS (7)
  - Prophylaxis [None]
  - Pre-eclampsia [None]
  - Injection site rash [None]
  - Rash generalised [None]
  - Rash pruritic [None]
  - Labour induction [None]
  - Exposure during pregnancy [None]
